FAERS Safety Report 8452413-9 (Version None)
Quarter: 2012Q2

REPORT INFORMATION
  Report Type: 
  Country: None (occurrence: None)
  Receive Date: 20120620
  Receipt Date: 20120618
  Transmission Date: 20120825
  Serious: No
  Sender: FDA-Public Use
  Company Number: US-PFIZER INC-2012117524

PATIENT
  Sex: Male

DRUGS (4)
  1. VIAGRA [Interacting]
     Dosage: 25 MG, AS NEEDED
  2. LISINOPRIL [Interacting]
     Indication: BLOOD PRESSURE ABNORMAL
     Dosage: 0.5 MG, P/O DAILY
     Route: 048
  3. VIAGRA [Interacting]
     Dosage: 50 MG (1/2 OF 100 MG), 6 TIMES
  4. VIAGRA [Suspect]
     Indication: ERECTILE DYSFUNCTION
     Dosage: UNK, AS NEEDED

REACTIONS (5)
  - DRUG INTERACTION [None]
  - HEADACHE [None]
  - DRUG INEFFECTIVE [None]
  - NAUSEA [None]
  - RHINORRHOEA [None]
